FAERS Safety Report 13073999 (Version 1)
Quarter: 2016Q4

REPORT INFORMATION
  Report Type: Spontaneous
  Country: CH (occurrence: CH)
  Receive Date: 20161229
  Receipt Date: 20161229
  Transmission Date: 20170207
  Serious: Yes (Hospitalization, Other)
  Sender: FDA-Public Use
  Company Number: CH-ASTRAZENECA-2016SF35251

PATIENT
  Age: 14 Year
  Sex: Male
  Weight: 44.9 kg

DRUGS (10)
  1. ZITHROMAX [Suspect]
     Active Substance: AZITHROMYCIN DIHYDRATE
     Indication: ANTIBIOTIC THERAPY
     Route: 048
  2. CREON [Concomitant]
     Active Substance: PANCRELIPASE AMYLASE\PANCRELIPASE LIPASE\PANCRELIPASE PROTEASE
     Indication: PANCREATIC ENZYMES
     Dosage: 11000.0IU/KG UNKNOWN
     Route: 048
  3. INSULIN PUMP [Concomitant]
     Active Substance: INSULIN NOS
     Dosage: SCHEMATIC ACCORDING TO MEAL AND SCHEDULE
  4. ADVAGRAF [Suspect]
     Active Substance: TACROLIMUS
     Indication: IMMUNOSUPPRESSANT DRUG THERAPY
     Route: 048
     Dates: start: 20151003
  5. CELLCEPT [Suspect]
     Active Substance: MYCOPHENOLATE MOFETIL\MYCOPHENOLATE MOFETIL HYDROCHLORIDE
     Indication: IMMUNOSUPPRESSANT DRUG THERAPY
     Route: 048
     Dates: start: 20151003
  6. PULMOZYME [Concomitant]
     Active Substance: DORNASE ALFA
     Indication: LUNG DISORDER
     Dosage: 2500.0IU UNKNOWN
     Route: 055
  7. ANTIBIOTIC THERAPY [Concomitant]
     Indication: PSEUDOMONAS INFECTION
  8. VENTOLIN [Concomitant]
     Active Substance: ALBUTEROL SULFATE
     Indication: OBSTRUCTIVE AIRWAYS DISORDER
     Route: 055
  9. NEXIUM [Suspect]
     Active Substance: ESOMEPRAZOLE MAGNESIUM
     Indication: GASTRIC DISORDER
     Dosage: 20 MG 2 PER DAY
     Route: 048
  10. SALT SUPPLEMENTATION [Concomitant]

REACTIONS (5)
  - Acute kidney injury [Unknown]
  - Nephropathy toxic [Not Recovered/Not Resolved]
  - Influenza [Unknown]
  - Petechiae [Unknown]
  - Blood sodium decreased [Not Recovered/Not Resolved]

NARRATIVE: CASE EVENT DATE: 2016
